FAERS Safety Report 7653918-0 (Version None)
Quarter: 2011Q3

REPORT INFORMATION
  Report Type: 
  Country: None (occurrence: None)
  Receive Date: 20110803
  Receipt Date: 20110727
  Transmission Date: 20111222
  Serious: Yes (Hospitalization, Other)
  Sender: FDA-Public Use
  Company Number: US-ELI_LILLY_AND_COMPANY-US201002004009

PATIENT
  Sex: Female
  Weight: 90.703 kg

DRUGS (11)
  1. BYETTA [Suspect]
     Dosage: UNK, UNKNOWN
     Dates: start: 20090801, end: 20100501
  2. PROTONIX [Concomitant]
  3. HYDROCHLOROTHIAZID [Concomitant]
     Indication: FLUID RETENTION
     Dates: start: 20000101
  4. LANTUS [Concomitant]
     Indication: DIABETES MELLITUS
     Dosage: UNK, UNK
     Dates: start: 20000101
  5. GLYBURIDE [Concomitant]
     Indication: DIABETES MELLITUS
     Dates: start: 20000101
  6. BYETTA [Suspect]
     Dosage: UNK, UNKNOWN
     Route: 065
     Dates: start: 20071201, end: 20080801
  7. LOVASTATIN [Concomitant]
     Indication: LIPIDS
     Dosage: UNK, UNK
     Dates: start: 20000101
  8. METFORMIN HCL [Concomitant]
     Indication: DIABETES MELLITUS
     Dates: start: 20000101
  9. TYLENOL                                 /SCH/ [Concomitant]
     Indication: HEADACHE
     Dates: start: 20000101
  10. LOVENOX [Concomitant]
     Dosage: 40 MG, QD
  11. NITROGLYCERIN [Concomitant]
     Dosage: 0.4 MG, PRN

REACTIONS (4)
  - OFF LABEL USE [None]
  - PANCREATITIS [None]
  - DYSPNOEA [None]
  - CHEST PAIN [None]
